FAERS Safety Report 6258120-5 (Version None)
Quarter: 2009Q3

REPORT INFORMATION
  Report Type: 
  Country: None (occurrence: None)
  Receive Date: 20090702
  Receipt Date: 20090702
  Transmission Date: 20100115
  Serious: Yes (Hospitalization)
  Sender: FDA-Public Use
  Company Number: None

PATIENT
  Age: 44 Year
  Sex: Male
  Weight: 57.9697 kg

DRUGS (8)
  1. VELCADE [Suspect]
     Indication: HEAD AND NECK CANCER
     Dosage: 1.79MG X4, 1.76MG X4
     Dates: start: 20090421, end: 20090522
  2. CISPLATIN [Suspect]
     Dosage: 54MG X3, 53MG X3
     Dates: start: 20090421, end: 20090526
  3. ROXICET [Concomitant]
  4. XANAX [Concomitant]
  5. ZOFRAN [Concomitant]
  6. OXYCONTIN [Concomitant]
  7. NEXIUM [Concomitant]
  8. ZOLOFT [Concomitant]

REACTIONS (3)
  - DEHYDRATION [None]
  - NAUSEA [None]
  - VOMITING [None]
